FAERS Safety Report 11068807 (Version 3)
Quarter: 2015Q4

REPORT INFORMATION
  Report Type: Report from Study
  Country: US (occurrence: US)
  Receive Date: 20150427
  Receipt Date: 20151201
  Transmission Date: 20160304
  Serious: Yes (Hospitalization, Other)
  Sender: FDA-Public Use
  Company Number: US-BIOGENIDEC-2015BI043061

PATIENT
  Age: 43 Year
  Sex: Female

DRUGS (3)
  1. TYSABRI [Suspect]
     Active Substance: NATALIZUMAB
     Indication: MULTIPLE SCLEROSIS
     Route: 042
  2. AMPYRA [Concomitant]
     Active Substance: DALFAMPRIDINE
     Dates: start: 2014
  3. TYSABRI [Suspect]
     Active Substance: NATALIZUMAB
     Indication: MULTIPLE SCLEROSIS
     Route: 042
     Dates: start: 20141210, end: 20150224

REACTIONS (37)
  - Pain [Unknown]
  - General physical health deterioration [Unknown]
  - Muscle spasticity [Not Recovered/Not Resolved]
  - Feeling cold [Recovered/Resolved]
  - Osteomyelitis [Not Recovered/Not Resolved]
  - Urinary tract infection [Recovered/Resolved]
  - Drug ineffective [Unknown]
  - Bipolar disorder [Not Recovered/Not Resolved]
  - Paraesthesia [Unknown]
  - Fatigue [Unknown]
  - Asthenia [Unknown]
  - Bladder spasm [Unknown]
  - Feeling hot [Recovered/Resolved]
  - Abdominal pain upper [Unknown]
  - Fall [Recovered/Resolved]
  - Muscle spasms [Unknown]
  - Hypoaesthesia [Unknown]
  - Chest pain [Unknown]
  - Chills [Unknown]
  - Pain in extremity [Recovered/Resolved]
  - Bone infarction [Recovered/Resolved]
  - Abasia [Unknown]
  - Urinary retention [Recovered/Resolved]
  - Mobility decreased [Not Recovered/Not Resolved]
  - Pruritus [Unknown]
  - Multiple sclerosis relapse [Recovered/Resolved]
  - Bladder dysfunction [Unknown]
  - Gait disturbance [Not Recovered/Not Resolved]
  - Burning sensation [Unknown]
  - Fear [Unknown]
  - Irritable bowel syndrome [Not Recovered/Not Resolved]
  - Band sensation [Unknown]
  - Malaise [Not Recovered/Not Resolved]
  - Chest discomfort [Unknown]
  - Bladder disorder [Recovered/Resolved]
  - Blister [Not Recovered/Not Resolved]
  - Nausea [Unknown]

NARRATIVE: CASE EVENT DATE: 201501
